FAERS Safety Report 21908410 (Version 3)
Quarter: 2023Q1

REPORT INFORMATION
  Report Type: Spontaneous
  Country: US (occurrence: US)
  Receive Date: 20230125
  Receipt Date: 20230314
  Transmission Date: 20230418
  Serious: No
  Sender: FDA-Public Use
  Company Number: US-PFIZER INC-PV202300014944

PATIENT
  Age: 74 Year
  Sex: Male
  Weight: 122.45 kg

DRUGS (1)
  1. RUXIENCE [Suspect]
     Active Substance: RITUXIMAB-PVVR
     Dosage: UNK (EVERY 6 MONTHS)

REACTIONS (4)
  - Fungal foot infection [Unknown]
  - Rash [Unknown]
  - Skin disorder [Unknown]
  - Pain [Unknown]
